FAERS Safety Report 13239244 (Version 1)
Quarter: 2017Q1

REPORT INFORMATION
  Report Type: Report from Study
  Country: US (occurrence: US)
  Receive Date: 20170216
  Receipt Date: 20170216
  Transmission Date: 20170428
  Serious: Yes (Death)
  Sender: FDA-Public Use
  Company Number: US-ASTRAZENECA-2016SF35113

PATIENT
  Age: 77 Year
  Sex: Female

DRUGS (4)
  1. DRONABINOL. [Concomitant]
     Active Substance: DRONABINOL
  2. IPRATROPIUM [Concomitant]
     Active Substance: IPRATROPIUM
  3. IRESSA [Suspect]
     Active Substance: GEFITINIB
     Indication: LUNG CARCINOMA CELL TYPE UNSPECIFIED STAGE 0
     Route: 048
     Dates: start: 20161020
  4. BENZONATATE. [Concomitant]
     Active Substance: BENZONATATE

REACTIONS (9)
  - Insomnia [Unknown]
  - Eye pruritus [Unknown]
  - Skin texture abnormal [Unknown]
  - Constipation [Unknown]
  - Fatigue [Unknown]
  - Diarrhoea [Unknown]
  - Nasopharyngitis [Unknown]
  - Death [Fatal]
  - Skin tightness [Unknown]
